FAERS Safety Report 25499024 (Version 1)
Quarter: 2025Q3

REPORT INFORMATION
  Report Type: Report from Study
  Country: CA (occurrence: CA)
  Receive Date: 20250701
  Receipt Date: 20250701
  Transmission Date: 20251020
  Serious: Yes (Other)
  Sender: ASTELLAS
  Company Number: CA-SEATTLE GENETICS-2022SGN05803

PATIENT
  Age: 88 Year
  Sex: Male
  Weight: 85 kg

DRUGS (5)
  1. ENFORTUMAB VEDOTIN-EJFV [Suspect]
     Active Substance: ENFORTUMAB VEDOTIN-EJFV
     Indication: Transitional cell carcinoma
     Route: 065
  2. ENFORTUMAB VEDOTIN-EJFV [Suspect]
     Active Substance: ENFORTUMAB VEDOTIN-EJFV
     Route: 065
  3. ENFORTUMAB VEDOTIN-EJFV [Suspect]
     Active Substance: ENFORTUMAB VEDOTIN-EJFV
     Route: 065
  4. ENFORTUMAB VEDOTIN-EJFV [Suspect]
     Active Substance: ENFORTUMAB VEDOTIN-EJFV
     Route: 065
  5. ENFORTUMAB VEDOTIN-EJFV [Suspect]
     Active Substance: ENFORTUMAB VEDOTIN-EJFV
     Route: 065

REACTIONS (13)
  - Haemorrhage urinary tract [Unknown]
  - Neuropathy peripheral [Not Recovered/Not Resolved]
  - Product distribution issue [Unknown]
  - Psoriasis [Not Recovered/Not Resolved]
  - Dry mouth [Unknown]
  - Eye infection [Unknown]
  - Weight increased [Unknown]
  - Melanocytic naevus [Unknown]
  - Hyperkeratosis [Unknown]
  - Rash [Not Recovered/Not Resolved]
  - Infection [Unknown]
  - Otorrhoea [Unknown]
  - Ear infection [Unknown]

NARRATIVE: CASE EVENT DATE: 20221109
